FAERS Safety Report 8831065 (Version 1)
Quarter: 2012Q4

REPORT INFORMATION
  Report Type: Report from Study
  Country: TR (occurrence: TR)
  Receive Date: 20121009
  Receipt Date: 20121009
  Transmission Date: 20130627
  Serious: Yes (Hospitalization)
  Sender: FDA-Public Use
  Company Number: TR-ASTELLAS-2012EU008889

PATIENT
  Age: 26 Month
  Sex: Male

DRUGS (1)
  1. TACROLIMUS SYSTEMIC [Suspect]
     Indication: LIVER TRANSPLANT
     Dosage: UNK
     Route: 065

REACTIONS (3)
  - H1N1 influenza [Recovered/Resolved]
  - Pleural effusion [Recovered/Resolved]
  - Lung consolidation [Recovered/Resolved]
